FAERS Safety Report 11734039 (Version 2)
Quarter: 2016Q2

REPORT INFORMATION
  Report Type: Report from Study
  Country: BG (occurrence: BG)
  Receive Date: 20151113
  Receipt Date: 20160427
  Transmission Date: 20160815
  Serious: Yes (Hospitalization, Other)
  Sender: FDA-Public Use
  Company Number: BG-ASTRAZENECA-2015SF07797

PATIENT
  Age: 48 Year
  Sex: Female

DRUGS (9)
  1. TORASEMIDE [Concomitant]
     Active Substance: TORSEMIDE
     Indication: MYOCARDIAL ISCHAEMIA
     Dates: start: 20150620
  2. ASPIRIN. [Suspect]
     Active Substance: ASPIRIN
     Indication: THROMBOSIS PROPHYLAXIS
     Dosage: NON-AZ PRODUCT
     Route: 048
     Dates: start: 20150509, end: 20151027
  3. TORASEMIDE [Concomitant]
     Active Substance: TORSEMIDE
     Indication: MYOCARDIAL ISCHAEMIA
     Dates: start: 20150509, end: 20150619
  4. TICAGRELOR [Suspect]
     Active Substance: TICAGRELOR
     Indication: THROMBOSIS PROPHYLAXIS
     Route: 048
     Dates: start: 20150509
  5. BISOPROLOL [Concomitant]
     Active Substance: BISOPROLOL
     Indication: MYOCARDIAL ISCHAEMIA
     Dates: start: 20150509
  6. SPIRONOLACTONE. [Concomitant]
     Active Substance: SPIRONOLACTONE
     Indication: BLOOD POTASSIUM
     Dates: start: 20150522, end: 20150619
  7. PERINDOPRIL [Concomitant]
     Active Substance: PERINDOPRIL
     Indication: BLOOD PRESSURE MEASUREMENT
     Dates: start: 20150509
  8. PANTOPRAZOLE [Concomitant]
     Active Substance: PANTOPRAZOLE SODIUM
     Indication: PROPHYLAXIS AGAINST GASTROINTESTINAL ULCER
     Dates: start: 20150619
  9. ROSUVASTATIN. [Concomitant]
     Active Substance: ROSUVASTATIN
     Dates: start: 20150509

REACTIONS (1)
  - Acute haemorrhagic ulcerative colitis [Recovered/Resolved with Sequelae]

NARRATIVE: CASE EVENT DATE: 20151021
